FAERS Safety Report 5527162-7 (Version None)
Quarter: 2007Q4

REPORT INFORMATION
  Report Type: 
  Country: None (occurrence: None)
  Receive Date: 20071121
  Receipt Date: 20071109
  Transmission Date: 20080405
  Serious: Yes (Hospitalization)
  Sender: FDA-Public Use
  Company Number: 239009K07USA

PATIENT
  Age: 43 Year
  Sex: Female
  Weight: 86.1834 kg

DRUGS (3)
  1. REBIF [Suspect]
     Indication: MULTIPLE SCLEROSIS
     Dosage: 44 MCG, 3 IN 1 WEEKS, SUBCUTANEOUS
     Route: 058
     Dates: start: 20070629
  2. PROVIGIL [Concomitant]
  3. ALEVE [Concomitant]

REACTIONS (3)
  - DISEASE RECURRENCE [None]
  - UTERINE ENLARGEMENT [None]
  - UTERINE POLYP [None]
